FAERS Safety Report 4967910-8 (Version None)
Quarter: 2006Q2

REPORT INFORMATION
  Report Type: 
  Country: None (occurrence: None)
  Receive Date: 20060410
  Receipt Date: 20060329
  Transmission Date: 20061013
  Serious: Yes (Hospitalization, Other)
  Sender: FDA-Public Use
  Company Number: US-MERCK-0604USA00134

PATIENT
  Age: 71 Year
  Sex: Male

DRUGS (1)
  1. VIOXX [Suspect]
     Indication: ARTHRITIS
     Route: 048
     Dates: start: 20010109, end: 20011126

REACTIONS (25)
  - ADVERSE DRUG REACTION [None]
  - ANAEMIA [None]
  - ARTERIAL RESTENOSIS [None]
  - BLOOD CULTURE POSITIVE [None]
  - CARDIAC FAILURE CONGESTIVE [None]
  - CEREBROVASCULAR ACCIDENT [None]
  - CEREBROVASCULAR DISORDER [None]
  - CHEST PAIN [None]
  - CORONARY ARTERY DISEASE [None]
  - DEPRESSION [None]
  - DYSARTHRIA [None]
  - ENCEPHALOPATHY [None]
  - FATIGUE [None]
  - GASTROOESOPHAGEAL REFLUX DISEASE [None]
  - HYPERLIPIDAEMIA [None]
  - HYPERTENSION [None]
  - HYPOTENSION [None]
  - HYPOTHYROIDISM [None]
  - INSOMNIA [None]
  - ISCHAEMIC CARDIOMYOPATHY [None]
  - KNEE ARTHROPLASTY [None]
  - MYOCARDIAL INFARCTION [None]
  - PYREXIA [None]
  - TRANSIENT ISCHAEMIC ATTACK [None]
  - URINARY TRACT INFECTION [None]
